FAERS Safety Report 10413664 (Version 3)
Quarter: 2014Q4

REPORT INFORMATION
  Report Type: Report from Study
  Country: US (occurrence: US)
  Receive Date: 20140827
  Receipt Date: 20141029
  Transmission Date: 20150528
  Serious: Yes (Other)
  Sender: FDA-Public Use
  Company Number: PHEH2014US016914

PATIENT
  Sex: Female

DRUGS (2)
  1. NEORAL [Suspect]
     Active Substance: CYCLOSPORINE
     Indication: LIVER TRANSPLANT
     Dosage: 50 MG, DAILY
     Route: 048
     Dates: start: 2004
  2. NEORAL [Suspect]
     Active Substance: CYCLOSPORINE
     Dosage: 125 MG, (25 MG 2 CAPSULES IN AM AND 3 CAPSULES IN PM)
     Route: 048

REACTIONS (2)
  - Ankle fracture [Recovered/Resolved]
  - Pain [Recovered/Resolved]
